FAERS Safety Report 25567921 (Version 4)
Quarter: 2025Q4

REPORT INFORMATION
  Report Type: Report from Study
  Country: EU (occurrence: EU)
  Receive Date: 20250716
  Receipt Date: 20251209
  Transmission Date: 20260118
  Serious: Yes (Death, Hospitalization)
  Sender: ALEXION PHARMACEUTICALS
  Company Number: EU-AstraZeneca-CH-00909919A

PATIENT
  Age: 64 Year
  Sex: Female
  Weight: 72 kg

DRUGS (1)
  1. ANIFROLUMAB [Suspect]
     Active Substance: ANIFROLUMAB
     Indication: Systemic lupus erythematosus
     Dosage: 300 MILLIGRAM, Q4W
     Dates: start: 20250626, end: 20250626

REACTIONS (2)
  - Endocarditis [Unknown]
  - Sepsis [Fatal]

NARRATIVE: CASE EVENT DATE: 20250714
